FAERS Safety Report 24109610 (Version 1)
Quarter: 2024Q3

REPORT INFORMATION
  Report Type: Spontaneous
  Country: GB (occurrence: GB)
  Receive Date: 20240718
  Receipt Date: 20240718
  Transmission Date: 20241017
  Serious: Yes (Other)
  Sender: TEVA
  Company Number: GB-MHRA-TPP11773167C7181661YC1719389954605

PATIENT
  Age: 64 Year
  Sex: Female
  Weight: 77 kg

DRUGS (8)
  1. EZETIMIBE [Suspect]
     Active Substance: EZETIMIBE
     Route: 065
     Dates: start: 20240612
  2. OPTILUBE [Concomitant]
     Dosage: USE AS DIRECTED
     Dates: start: 20230308
  3. EMA [Concomitant]
     Dosage: USE AS DIRECTED
     Dates: start: 20240515
  4. BISACODYL [Concomitant]
     Active Substance: BISACODYL
     Dosage: INSERT AS REQUIRED
     Dates: start: 20230308
  5. SENNA [Concomitant]
     Active Substance: SENNA LEAF\SENNOSIDES\SENNOSIDES A AND B
     Dosage: TAKE 1 OR 2 AT NIGHT
     Dates: start: 20230308
  6. CROMOLYN SODIUM [Concomitant]
     Active Substance: CROMOLYN SODIUM
     Dosage: DROP
     Dates: start: 20230308
  7. ROSUVASTATIN [Concomitant]
     Active Substance: ROSUVASTATIN\ROSUVASTATIN CALCIUM
     Dates: start: 20240314, end: 20240612
  8. BEMPEDOIC ACID\EZETIMIBE [Suspect]
     Active Substance: BEMPEDOIC ACID\EZETIMIBE
     Dosage: BEMPEDOIC ACID 180MG / EZETIMIBE 10MG TABLETS,
     Route: 065
     Dates: start: 20240612

REACTIONS (2)
  - Urine output decreased [Recovered/Resolved]
  - Headache [Recovered/Resolved]
